FAERS Safety Report 21605148 (Version 1)
Quarter: 2022Q4

REPORT INFORMATION
  Report Type: Spontaneous
  Country: US (occurrence: None)
  Receive Date: 20221116
  Receipt Date: 20221116
  Transmission Date: 20230113
  Serious: Yes (Other)
  Sender: FDA-Public Use
  Company Number: None

PATIENT
  Age: 68 Year
  Sex: Male
  Weight: 74.25 kg

DRUGS (15)
  1. AXICABTAGENE CILOLEUCEL [Suspect]
     Active Substance: AXICABTAGENE CILOLEUCEL
     Indication: Diffuse large B-cell lymphoma
     Dosage: FREQUENCY : ONCE;?
     Route: 041
     Dates: start: 20220808, end: 20220808
  2. ALLOPURINOL [Concomitant]
     Active Substance: ALLOPURINOL
     Dates: start: 20220808, end: 20220819
  3. CHLORHEXIDINE [Concomitant]
     Active Substance: CHLORHEXIDINE
     Dates: start: 20220808, end: 20220821
  4. CIPROFLOXACIN [Concomitant]
     Active Substance: CIPROFLOXACIN
     Dates: start: 20220808, end: 20220812
  5. DOCUSATE [Concomitant]
     Active Substance: DOCUSATE
     Dates: start: 20220808, end: 20220821
  6. FLUCONAZOLE [Concomitant]
     Active Substance: FLUCONAZOLE
     Dates: start: 20220808, end: 20220819
  7. LOSARTAN [Concomitant]
     Active Substance: LOSARTAN
     Dates: start: 20220808, end: 20220820
  8. MAGNESIUM OXIDE [Concomitant]
     Active Substance: MAGNESIUM OXIDE
     Dates: start: 20220809, end: 20220819
  9. MAGNESIUM SULFATE [Concomitant]
     Active Substance: MAGNESIUM SULFATE
     Dates: end: 20220815
  10. MELATONIN [Concomitant]
     Active Substance: MELATONIN
     Dates: start: 20220809, end: 20220820
  11. POLYETHYLENE GLYCOL [Concomitant]
     Active Substance: POLYETHYLENE GLYCOL
     Dates: start: 20220811, end: 20220818
  12. POTASSIUM CHLORIDE [Concomitant]
     Active Substance: POTASSIUM CHLORIDE
     Dates: start: 20220809, end: 20220816
  13. supersaturated calcium phosphate rinse [Concomitant]
     Dates: start: 20220808, end: 20220821
  14. TRAMADOL [Concomitant]
     Active Substance: TRAMADOL
     Dates: start: 20220812, end: 20220812
  15. VALACYCLOVIR [Concomitant]
     Active Substance: VALACYCLOVIR HYDROCHLORIDE
     Dates: start: 20220808, end: 20220821

REACTIONS (2)
  - Cytokine release syndrome [None]
  - Infusion related reaction [None]

NARRATIVE: CASE EVENT DATE: 20220812
